FAERS Safety Report 25652116 (Version 1)
Quarter: 2025Q3

REPORT INFORMATION
  Report Type: Report from Study
  Country: US (occurrence: US)
  Receive Date: 20250806
  Receipt Date: 20250806
  Transmission Date: 20251020
  Serious: Yes (Other)
  Sender: ABBVIE
  Company Number: US-ABBVIE-6403329

PATIENT
  Age: 30 Year
  Sex: Male

DRUGS (4)
  1. RINVOQ [Suspect]
     Active Substance: UPADACITINIB
     Indication: Eczema
     Route: 048
     Dates: start: 202408
  2. RINVOQ [Suspect]
     Active Substance: UPADACITINIB
     Indication: Eczema
     Dosage: DRUG END DATE 2025
     Route: 048
     Dates: start: 202502
  3. RINVOQ [Suspect]
     Active Substance: UPADACITINIB
     Indication: Eczema
     Dosage: DRUG END DATE 2025
     Route: 048
     Dates: start: 202504
  4. RINVOQ [Suspect]
     Active Substance: UPADACITINIB
     Indication: Eczema
     Dosage: DRUG START DATE 2025
     Route: 048

REACTIONS (3)
  - Surgery [Unknown]
  - Pruritus [Recovered/Resolved]
  - Skin fissures [Recovered/Resolved]

NARRATIVE: CASE EVENT DATE: 20250101
